FAERS Safety Report 14571401 (Version 4)
Quarter: 2019Q2

REPORT INFORMATION
  Report Type: Spontaneous
  Country: FR (occurrence: FR)
  Receive Date: 20180226
  Receipt Date: 20190420
  Transmission Date: 20190711
  Serious: Yes (Death, Life-Threatening, Hospitalization, Other)
  Sender: FDA-Public Use
  Company Number: PHHY2017FR173948

PATIENT
  Age: 67 Year
  Sex: Male

DRUGS (8)
  1. MYCOPHENOLATE MOFETIL. [Suspect]
     Active Substance: MYCOPHENOLATE MOFETIL
     Indication: IMMUNOSUPPRESSANT DRUG THERAPY
  2. TACROLIMUS. [Suspect]
     Active Substance: TACROLIMUS
     Indication: TRANSPLANT
     Dosage: UNK
     Route: 065
     Dates: start: 201411, end: 201504
  3. MYCOPHENOLATE MOFETIL. [Suspect]
     Active Substance: MYCOPHENOLATE MOFETIL
     Indication: RENAL TRANSPLANT
     Dosage: 63000 MG, UNK
     Route: 065
     Dates: start: 201411
  4. CORTANCYL [Suspect]
     Active Substance: PREDNISONE
     Indication: RENAL TRANSPLANT
     Dosage: UNK
     Route: 048
  5. NULOJIX [Suspect]
     Active Substance: BELATACEPT
     Indication: PRODUCT USED FOR UNKNOWN INDICATION
     Dosage: 5 MG/KG, QMO
     Route: 042
  6. BASILIXIMAB [Suspect]
     Active Substance: BASILIXIMAB
     Indication: RENAL TRANSPLANT
     Dosage: UNK
     Route: 065
  7. NULOJIX [Suspect]
     Active Substance: BELATACEPT
     Dosage: 10 MG, UNK
     Route: 042
  8. TACROLIMUS. [Suspect]
     Active Substance: TACROLIMUS
     Indication: IMMUNOSUPPRESSANT DRUG THERAPY

REACTIONS (21)
  - Confusional state [Fatal]
  - Learning disorder [Fatal]
  - Cytomegalovirus infection [Fatal]
  - Kidney transplant rejection [Fatal]
  - Progressive multifocal leukoencephalopathy [Fatal]
  - Muscular weakness [Fatal]
  - Visual impairment [Fatal]
  - Disorientation [Fatal]
  - Aphasia [Fatal]
  - BK virus infection [Fatal]
  - Affective disorder [Fatal]
  - Hemiplegia [Fatal]
  - Respiratory failure [Fatal]
  - Hypogammaglobulinaemia [Fatal]
  - Hemiparesis [Fatal]
  - Epstein-Barr virus infection [Fatal]
  - JC virus infection [Fatal]
  - Lymphopenia [Fatal]
  - Polyomavirus-associated nephropathy [Unknown]
  - Blindness cortical [Fatal]
  - Coma [Fatal]

NARRATIVE: CASE EVENT DATE: 201501
